FAERS Safety Report 11805736 (Version 1)
Quarter: 2015Q4

REPORT INFORMATION
  Report Type: Spontaneous
  Country: US (occurrence: None)
  Receive Date: 20151204
  Receipt Date: 20151204
  Transmission Date: 20160305
  Serious: Yes (Disabling, Other)
  Sender: FDA-Public Use
  Company Number: None

PATIENT
  Age: 36 Year
  Sex: Female
  Weight: 58.97 kg

DRUGS (5)
  1. NUVIGIL [Suspect]
     Active Substance: ARMODAFINIL
     Indication: HYPERSOMNIA
     Dosage: 1 PILL
     Route: 048
  2. METHYLPHENIDATE. [Concomitant]
     Active Substance: METHYLPHENIDATE
  3. MULTIVITAMIN [Concomitant]
     Active Substance: VITAMINS
  4. PROBIOTICS [Concomitant]
     Active Substance: PROBIOTICS NOS
  5. MAGNESIUM [Concomitant]
     Active Substance: MAGNESIUM

REACTIONS (3)
  - Wheezing [None]
  - Dyspnoea [None]
  - Pain [None]

NARRATIVE: CASE EVENT DATE: 20150220
